FAERS Safety Report 18208004 (Version 1)
Quarter: 2020Q3

REPORT INFORMATION
  Report Type: Spontaneous
  Country: US (occurrence: US)
  Receive Date: 20200828
  Receipt Date: 20200828
  Transmission Date: 20201103
  Serious: Yes (Death)
  Sender: FDA-Public Use
  Company Number: None

PATIENT
  Age: 65 Year
  Sex: Male
  Weight: 57.63 kg

DRUGS (22)
  1. LEVOFLOXACIN. [Concomitant]
     Active Substance: LEVOFLOXACIN
  2. ZARXIO [Concomitant]
     Active Substance: FILGRASTIM-SNDZ
  3. TRICOR [Concomitant]
     Active Substance: FENOFIBRATE
  4. NARCAN [Concomitant]
     Active Substance: NALOXONE HYDROCHLORIDE
  5. ISOSORISOSORBIDE DINITRATE [Concomitant]
  6. RANEXA [Concomitant]
     Active Substance: RANOLAZINE
  7. NITROSTAT [Concomitant]
     Active Substance: NITROGLYCERIN
  8. LIPITOR [Concomitant]
     Active Substance: ATORVASTATIN CALCIUM
  9. DEFERASIROX. [Suspect]
     Active Substance: DEFERASIROX
     Indication: REFRACTORY ANAEMIA WITH AN EXCESS OF BLASTS
     Route: 048
     Dates: start: 20200729, end: 20200828
  10. LYRICA [Concomitant]
     Active Substance: PREGABALIN
  11. ZOFRAN [Concomitant]
     Active Substance: ONDANSETRON HYDROCHLORIDE
  12. VALIUM [Concomitant]
     Active Substance: DIAZEPAM
  13. TEMAZEPAM. [Concomitant]
     Active Substance: TEMAZEPAM
  14. OXYCONTIN [Concomitant]
     Active Substance: OXYCODONE HYDROCHLORIDE
  15. ONDANSETRON HCL [Concomitant]
     Active Substance: ONDANSETRON HYDROCHLORIDE
  16. VITAMIN D3 COMPLETE [Concomitant]
  17. RETACRIT [Concomitant]
     Active Substance: EPOETIN ALFA-EPBX
  18. OXYCODONE HYDROCHLORIDE. [Concomitant]
     Active Substance: OXYCODONE HYDROCHLORIDE
  19. MAGIC MOUTHWASH [Concomitant]
     Active Substance: DIPHENHYDRAMINE HYDROCHLORIDE\LIDOCAINE HYDROCHLORIDE\NYSTATIN
  20. PAXIL [Concomitant]
     Active Substance: PAROXETINE HYDROCHLORIDE
  21. NYSTATIN. [Concomitant]
     Active Substance: NYSTATIN
  22. MUPIROCIN. [Concomitant]
     Active Substance: MUPIROCIN

REACTIONS (1)
  - Death [None]

NARRATIVE: CASE EVENT DATE: 20200828
